FAERS Safety Report 4740898-0 (Version None)
Quarter: 2005Q3

REPORT INFORMATION
  Report Type: 
  Country: None (occurrence: None)
  Receive Date: 20050729
  Receipt Date: 20050329
  Transmission Date: 20060218
  Serious: Yes (Other)
  Sender: FDA-Public Use
  Company Number: US-2005-004465

PATIENT
  Age: 43 Year
  Sex: Male
  Weight: 88.4 kg

DRUGS (1)
  1. MAGNEVIST [Suspect]
     Indication: NUCLEAR MAGNETIC RESONANCE IMAGING
     Dosage: 20 ML, 1 DOSE, INTRAVENOUS
     Route: 042
     Dates: start: 20050325, end: 20050325

REACTIONS (5)
  - EYELID OEDEMA [None]
  - NASAL CONGESTION [None]
  - OROPHARYNGEAL SWELLING [None]
  - SWELLING FACE [None]
  - URTICARIA LOCALISED [None]
